FAERS Safety Report 5377489-7 (Version None)
Quarter: 2007Q3

REPORT INFORMATION
  Report Type: 
  Country: None (occurrence: None)
  Receive Date: 20070703
  Receipt Date: 20070626
  Transmission Date: 20080115
  Serious: Yes (Hospitalization)
  Sender: FDA-Public Use
  Company Number: GB-ROCHE-503939

PATIENT
  Age: 13 Year
  Sex: Male

DRUGS (4)
  1. MYCOPHENOLATE MOFETIL [Suspect]
     Route: 048
     Dates: start: 20070219
  2. FK506 [Suspect]
     Route: 048
     Dates: start: 20070219
  3. PREDNISOLONE [Concomitant]
  4. PHOSPHATE-SANDOZ [Concomitant]

REACTIONS (3)
  - OBSTRUCTION [None]
  - OVERDOSE [None]
  - URINOMA [None]
